FAERS Safety Report 5323302-3 (Version None)
Quarter: 2007Q2

REPORT INFORMATION
  Report Type: 
  Country: None (occurrence: None)
  Receive Date: 20070221
  Receipt Date: 20061221
  Transmission Date: 20071010
  Serious: Yes (Death)
  Sender: FDA-Public Use
  Company Number: BDI-008969

PATIENT
  Age: 77 Year
  Sex: Female

DRUGS (5)
  1. ISOVUE-370 [Suspect]
     Indication: COMPUTERISED TOMOGRAM
     Dosage: 120 ML ONCE IV
     Route: 042
     Dates: start: 20061218, end: 20061218
  2. ASPIRIN [Concomitant]
  3. ZOSYN [Concomitant]
  4. VANCOMYCIN [Concomitant]
  5. HYDROCORTISONE [Concomitant]

REACTIONS (4)
  - BLOOD PRESSURE DECREASED [None]
  - CARDIAC ARREST [None]
  - CONFUSIONAL STATE [None]
  - HEART RATE INCREASED [None]
